FAERS Safety Report 8022655-5 (Version None)
Quarter: 2011Q4

REPORT INFORMATION
  Report Type: 
  Country: None (occurrence: None)
  Receive Date: 20111229
  Receipt Date: 20111215
  Transmission Date: 20120403
  Serious: Yes (Other)
  Sender: FDA-Public Use
  Company Number: 1000026532

PATIENT
  Age: 59 Year
  Sex: Female
  Weight: 59 kg

DRUGS (4)
  1. ESCITALOPRAM OXALATE [Suspect]
     Indication: DEPRESSION
     Dosage: 20 MG (20 MG, 1 IN 1 D), ORAL
     Route: 048
     Dates: start: 20110511, end: 20110609
  2. ESCITALOPRAM OXALATE [Suspect]
     Indication: DEPRESSION
     Dosage: 40 MG (2 DOSAGE FORMS, 1 IN 1 D), ORAL
     Route: 048
     Dates: start: 20110610, end: 20110617
  3. IXPRIM (TRAMADOL, PARACETAMOL) (TRAMADOL, PARACETAMOL) [Concomitant]
  4. SERESTA (OXAZEPAM) (OXAZEPAM) [Concomitant]

REACTIONS (5)
  - DRUG INEFFECTIVE [None]
  - IMPAIRED WORK ABILITY [None]
  - SENSE OF OPPRESSION [None]
  - MALAISE [None]
  - SUICIDAL IDEATION [None]
